FAERS Safety Report 5590354-5 (Version None)
Quarter: 2008Q1

REPORT INFORMATION
  Report Type: 
  Country: None (occurrence: None)
  Receive Date: 20080114
  Receipt Date: 20080102
  Transmission Date: 20080703
  Serious: Yes (Other)
  Sender: FDA-Public Use
  Company Number: US-WYE-H01939408

PATIENT
  Sex: Female

DRUGS (1)
  1. NEUMEGA [Suspect]
     Indication: THROMBOCYTOPENIA
     Dosage: UNKNOWN
     Route: 065
     Dates: end: 20071101

REACTIONS (3)
  - INTRACRANIAL PRESSURE INCREASED [None]
  - PAPILLOEDEMA [None]
  - VISUAL DISTURBANCE [None]
